FAERS Safety Report 4305960-5 (Version None)
Quarter: 2004Q1

REPORT INFORMATION
  Report Type: 
  Country: None (occurrence: None)
  Receive Date: 20040225
  Receipt Date: 20040216
  Transmission Date: 20041129
  Serious: Yes (Life-Threatening, Hospitalization)
  Sender: FDA-Public Use
  Company Number: 04P-167-0250766-00

PATIENT
  Age: 19 Year
  Sex: Female
  Weight: 34.5641 kg

DRUGS (11)
  1. ISOPTIN [Suspect]
     Indication: APPENDICECTOMY
     Dates: start: 20040120, end: 20040120
  2. BUPIVACAINE [Suspect]
     Indication: ANAESTHESIA
     Dates: start: 20040120, end: 20040120
  3. THIOPENTAL SODIUM [Suspect]
     Indication: APPENDICECTOMY
     Dates: start: 20040120, end: 20040120
  4. SUCCINYLCHOLINE CHLORIDE [Suspect]
     Indication: APPENDICECTOMY
     Dates: start: 20040120, end: 20040120
  5. FENTANYL [Suspect]
     Indication: APPENDICECTOMY
     Dates: start: 20040120, end: 20040120
  6. MORPHINE [Suspect]
     Indication: APPENDICECTOMY
     Dates: start: 20010120, end: 20040121
  7. CEFUROXIME [Suspect]
     Indication: APPENDICECTOMY
     Dates: start: 20040120, end: 20040120
  8. METRONIDAZOLE [Suspect]
     Indication: APPENDICECTOMY
     Dates: start: 20040120, end: 20040120
  9. EPHEDRINE [Suspect]
     Indication: APPENDICECTOMY
     Dates: start: 20040120, end: 20040120
  10. ONDANSETRON HCL [Suspect]
     Indication: APPENDICECTOMY
     Dates: start: 20040120, end: 20040120
  11. IODINE [Suspect]
     Indication: APPENDICECTOMY
     Dates: start: 20040120, end: 20040120

REACTIONS (6)
  - ERYTHEMA [None]
  - HYPOTENSION [None]
  - PRURITUS [None]
  - STRIDOR [None]
  - SWELLING FACE [None]
  - WHEEZING [None]
